FAERS Safety Report 21396797 (Version 1)
Quarter: 2022Q3

REPORT INFORMATION
  Report Type: Spontaneous
  Country: TW (occurrence: None)
  Receive Date: 20220930
  Receipt Date: 20220930
  Transmission Date: 20221026
  Serious: Yes (Other)
  Sender: FDA-Public Use
  Company Number: TW-ROCHE-3189469

PATIENT

DRUGS (13)
  1. POLATUZUMAB VEDOTIN [Suspect]
     Active Substance: POLATUZUMAB VEDOTIN
     Indication: Diffuse large B-cell lymphoma
     Dosage: 13/JAN/2021, 28/FEB/2021, 11/APR/2021
     Route: 065
  2. RITUXIMAB [Suspect]
     Active Substance: RITUXIMAB
     Indication: Diffuse large B-cell lymphoma
     Dosage: R-CHOP
     Route: 065
     Dates: start: 20191005
  3. RITUXIMAB [Suspect]
     Active Substance: RITUXIMAB
     Dosage: R-CHOP, 27-OCT-2019, 20-NOV-2019, 14-DEC-2019, 04-JAN-2020, 30-JAN-2020
     Route: 065
     Dates: start: 20191014
  4. CYCLOPHOSPHAMIDE [Concomitant]
     Active Substance: CYCLOPHOSPHAMIDE
     Indication: Diffuse large B-cell lymphoma
     Dosage: R-CHOP, 27-OCT-2019, 20-NOV-2019, 14-DEC-2019, 04-JAN-2020, 30-JAN-2020
     Dates: start: 20191005
  5. DOXORUBICIN [Concomitant]
     Active Substance: DOXORUBICIN
     Indication: Diffuse large B-cell lymphoma
     Dosage: R-CHOP, 27-OCT-2019, 20-NOV-2019, 14-DEC-2019, 04-JAN-2020, 30-JAN-2020
     Dates: start: 20191005
  6. VINCRISTINE [Concomitant]
     Active Substance: VINCRISTINE
     Indication: Diffuse large B-cell lymphoma
     Dosage: R-CHOP, 27-OCT-2019, 20-NOV-2019, 14-DEC-2019, 04-JAN-2020, 30-JAN-2020
     Dates: start: 20191005
  7. PREDNISONE [Concomitant]
     Active Substance: PREDNISONE
     Indication: Diffuse large B-cell lymphoma
     Dosage: R-CHOP, 27-OCT-2019, 20-NOV-2019, 14-DEC-2019, 04-JAN-2020, 30-JAN-2020
     Dates: start: 20191005
  8. ETOPOSIDE [Concomitant]
     Active Substance: ETOPOSIDE
     Indication: Diffuse large B-cell lymphoma
     Dosage: MINI-ESHAP, 23-JUL-2020 AND 14-AUG-2020, R-CHOP, 27-OCT-2019, 20-NOV-2019, 14-DEC-2019, 04-JAN-2020,
  9. METHYLPREDNISOLONE [Concomitant]
     Active Substance: METHYLPREDNISOLONE
     Indication: Diffuse large B-cell lymphoma
     Dosage: R-CHOP, 27-OCT-2019, 20-NOV-2019, 14-DEC-2019, 04-JAN-2020, 30-JAN-2020, MINI-ESHAP, 23-JUL-2020 AND
  10. CISPLATIN [Concomitant]
     Active Substance: CISPLATIN
     Indication: Diffuse large B-cell lymphoma
     Dosage: MINI-ESHAP, 23-JUL-2020 AND 14-AUG-2020, R-CHOP, 27-OCT-2019, 20-NOV-2019, 14-DEC-2019, 04-JAN-2020,
  11. CYTARABINE [Concomitant]
     Active Substance: CYTARABINE
     Indication: Diffuse large B-cell lymphoma
     Dosage: R-CHOP, 27-OCT-2019, 20-NOV-2019, 14-DEC-2019, 04-JAN-2020, 30-JAN-2020, MINI-ESHAP, 23-JUL-2020 AND
  12. GEMCITABINE [Concomitant]
     Active Substance: GEMCITABINE
     Indication: Diffuse large B-cell lymphoma
  13. OXALIPLATIN [Concomitant]
     Active Substance: OXALIPLATIN
     Indication: Diffuse large B-cell lymphoma

REACTIONS (2)
  - Off label use [Unknown]
  - Diffuse large B-cell lymphoma recurrent [Unknown]

NARRATIVE: CASE EVENT DATE: 20200701
